FAERS Safety Report 4579696-X (Version None)
Quarter: 2005Q1

REPORT INFORMATION
  Report Type: 
  Country: None (occurrence: None)
  Receive Date: 20050214
  Receipt Date: 20050203
  Transmission Date: 20050727
  Serious: Yes (Life-Threatening, Hospitalization, Disabling)
  Sender: FDA-Public Use
  Company Number: FI-ABBOTT-05P-055-0289788-00

PATIENT
  Age: 37 Year
  Sex: Female

DRUGS (2)
  1. DEPAKENE [Suspect]
     Indication: BIPOLAR DISORDER
     Route: 048
  2. EFFEXOR [Concomitant]
     Indication: DEPRESSION
     Route: 048

REACTIONS (6)
  - BONE MARROW DEPRESSION [None]
  - DRUG TOXICITY [None]
  - LEUKOPENIA [None]
  - PANCREATITIS HAEMORRHAGIC [None]
  - RENAL FAILURE ACUTE [None]
  - THROMBOCYTOPENIA [None]
